FAERS Safety Report 4440143-X (Version None)
Quarter: 2004Q3

REPORT INFORMATION
  Report Type: 
  Country: None (occurrence: None)
  Receive Date: 20040831
  Receipt Date: 20040707
  Transmission Date: 20050211
  Serious: No
  Sender: FDA-Public Use
  Company Number: 702123

PATIENT
  Sex: Female

DRUGS (1)
  1. AMEVIVE [Suspect]

REACTIONS (7)
  - BURNING SENSATION [None]
  - CHILLS [None]
  - LYMPHADENOPATHY [None]
  - MYOPATHY [None]
  - NAUSEA [None]
  - PHARYNGITIS [None]
  - PHARYNGITIS STREPTOCOCCAL [None]
